FAERS Safety Report 5391800-2 (Version None)
Quarter: 2007Q3

REPORT INFORMATION
  Report Type: 
  Country: None (occurrence: None)
  Receive Date: 20070719
  Receipt Date: 20070709
  Transmission Date: 20080115
  Serious: Yes (Hospitalization)
  Sender: FDA-Public Use
  Company Number: AR-ABBOTT-07P-007-0372628-00

PATIENT
  Sex: Female

DRUGS (4)
  1. RITONAVIR SOFT GELATIN CAPSULES [Suspect]
     Indication: HIV INFECTION
     Route: 048
     Dates: start: 20050607, end: 20070620
  2. TIPRANAVIR [Suspect]
     Indication: HIV INFECTION
     Route: 048
     Dates: start: 20050607, end: 20070620
  3. ABACAVIR [Concomitant]
     Indication: HIV INFECTION
     Route: 048
     Dates: start: 20040419, end: 20070620
  4. DIDANOSINE [Concomitant]
     Indication: HIV INFECTION
     Route: 048
     Dates: start: 20040419, end: 20070620

REACTIONS (1)
  - ABORTION SPONTANEOUS [None]
